FAERS Safety Report 12770354 (Version 1)
Quarter: 2016Q3

REPORT INFORMATION
  Report Type: Report from Study
  Country: FR (occurrence: FR)
  Receive Date: 20160922
  Receipt Date: 20160922
  Transmission Date: 20161109
  Serious: Yes (Other)
  Sender: FDA-Public Use
  Company Number: FR-ROCHE-1832744

PATIENT
  Sex: Male
  Weight: 66 kg

DRUGS (3)
  1. RIBAVIRIN. [Suspect]
     Active Substance: RIBAVIRIN
     Indication: HEPATITIS C
     Route: 065
     Dates: start: 20160119, end: 20160124
  2. OMBITASVIR/PARITAPREVIR/RITONAVIR [Suspect]
     Active Substance: OMBITASVIR\PARITAPREVIR\RITONAVIR
     Indication: HEPATITIS C
     Route: 065
     Dates: start: 20160119, end: 20160412
  3. DASABUVIR [Suspect]
     Active Substance: DASABUVIR
     Indication: HEPATITIS C
     Route: 065
     Dates: start: 20160119, end: 20160422

REACTIONS (1)
  - Polyarthritis [Recovering/Resolving]

NARRATIVE: CASE EVENT DATE: 20160124
